FAERS Safety Report 12725082 (Version 3)
Quarter: 2016Q3

REPORT INFORMATION
  Report Type: Spontaneous
  Country: IT (occurrence: IT)
  Receive Date: 20160908
  Receipt Date: 20160915
  Transmission Date: 20161109
  Serious: Yes (Hospitalization)
  Sender: FDA-Public Use
  Company Number: IT-TEVA-689411ACC

PATIENT
  Age: 78 Year
  Sex: Male

DRUGS (5)
  1. CARBOPLATINO TEVA - 10 MG/ML - TEVA PHARMA B.V. [Suspect]
     Active Substance: CARBOPLATIN
     Indication: ADENOCARCINOMA
     Dosage: 275 MG TOTAL
     Dates: start: 20160627, end: 20160627
  2. GRANISETRON KABI - 1MG/ML CONCENTRATO PER SOLUZIONE INIETTABILE/INFUSI [Concomitant]
     Active Substance: GRANISETRON
     Indication: PROPHYLAXIS OF NAUSEA AND VOMITING
     Dosage: 3 MG
     Route: 042
     Dates: start: 20160627, end: 20160627
  3. NAVELBINE [Suspect]
     Active Substance: VINORELBINE TARTRATE
     Indication: ADENOCARCINOMA
     Dosage: 45 MG TOTAL
     Dates: start: 20160627, end: 20160627
  4. ZANTAC - 50 MG/5 ML SOLUZIONE INIETTABILE - GLAXOSMITHKLINE S.P.A. [Concomitant]
     Indication: PROPHYLAXIS OF NAUSEA AND VOMITING
     Dosage: 50 MG
     Route: 042
     Dates: start: 20160627, end: 20160627
  5. SOLDESAM - 4 MG/ML SOLUZIONE INIETTABILE - LABORATORIO FARMACOLOGICO M [Concomitant]
     Indication: INFLAMMATION
     Dosage: 8 MG
     Route: 042
     Dates: start: 20160627, end: 20160627

REACTIONS (4)
  - Adrenal gland injury [Unknown]
  - Pleural effusion [Unknown]
  - Pulmonary embolism [Unknown]
  - Hepatic lesion [Unknown]

NARRATIVE: CASE EVENT DATE: 20160720
